FAERS Safety Report 9418982 (Version 2)
Quarter: 2014Q1

REPORT INFORMATION
  Report Type: Report from Study
  Country: IT (occurrence: IT)
  Receive Date: 20130725
  Receipt Date: 20140312
  Transmission Date: 20141002
  Serious: Yes (Hospitalization)
  Sender: FDA-Public Use
  Company Number: PHHO2013IT009529

PATIENT
  Age: 73 Year
  Sex: Female
  Weight: 76 kg

DRUGS (4)
  1. AMN107 [Suspect]
     Indication: CHRONIC MYELOID LEUKAEMIA
     Dosage: 400 MG, BID
     Route: 048
     Dates: start: 20080320, end: 20130702
  2. DASATINIB [Concomitant]
     Indication: CHRONIC MYELOID LEUKAEMIA
     Dosage: 100 MG DAILY
     Dates: start: 20140221
  3. DEPAKIN [Concomitant]
     Indication: DEPRESSION
     Dosage: 300 MG, UNK
     Route: 048
     Dates: start: 20110624
  4. LANSOPRAZOLO [Concomitant]
     Dosage: 15 MG, UNK
     Route: 048

REACTIONS (1)
  - Myocardial infarction [Recovered/Resolved]
